FAERS Safety Report 6193771-8 (Version None)
Quarter: 2009Q2

REPORT INFORMATION
  Report Type: 
  Country: None (occurrence: None)
  Receive Date: 20090506
  Receipt Date: 20090428
  Transmission Date: 20091009
  Serious: Yes (Other)
  Sender: FDA-Public Use
  Company Number: 2009020136

PATIENT
  Age: 59 Year
  Sex: Male
  Weight: 87.0906 kg

DRUGS (10)
  1. IMMUNE GLOBULIN INTRAVENOUS (HUMAN) [Suspect]
     Indication: CHRONIC LEUKAEMIA
     Dosage: 36 G EVERY 1-2 MONTHS INTRAVENOUS (NOT OTHERWISE SPECIFIED)
     Route: 042
     Dates: start: 20070101
  2. IMMUNE GLOBULIN INTRAVENOUS (HUMAN) [Suspect]
  3. IMMUNE GLOBULIN INTRAVENOUS (HUMAN) [Suspect]
  4. IMMUNE GLOBULIN INTRAVENOUS (HUMAN) [Suspect]
  5. IMMUNE GLOBULIN INTRAVENOUS (HUMAN) [Suspect]
  6. IMMUNE GLOBULIN INTRAVENOUS (HUMAN) [Suspect]
  7. IMMUNE GLOBULIN INTRAVENOUS (HUMAN) [Suspect]
  8. ALLERGRA (FEXOFENADINE) [Concomitant]
  9. IBUPROFEN [Concomitant]
  10. MULTIVITAMIN (DAILY MULTIVITAMIN) [Concomitant]

REACTIONS (2)
  - HEPATITIS B [None]
  - TRANSMISSION OF AN INFECTIOUS AGENT VIA A MEDICINAL PRODUCT [None]
